FAERS Safety Report 8622906-X (Version None)
Quarter: 2012Q3

REPORT INFORMATION
  Report Type: 
  Country: None (occurrence: None)
  Receive Date: 20120827
  Receipt Date: 20120820
  Transmission Date: 20120928
  Serious: No
  Sender: FDA-Public Use
  Company Number: PHEH2012US014521

PATIENT
  Sex: Female

DRUGS (11)
  1. FOLTX [Concomitant]
  2. NEXIUM [Concomitant]
  3. DIOVAN [Concomitant]
  4. HYDRALAZINE HCL [Concomitant]
  5. LIPITOR [Concomitant]
  6. LEVOXYL [Concomitant]
  7. AMLODIPINE [Concomitant]
  8. NADOLOL [Concomitant]
  9. ZETIA [Concomitant]
  10. ESTRACE [Concomitant]
  11. TASIGNA [Suspect]
     Indication: CHRONIC MYELOID LEUKAEMIA
     Dosage: 300 MG, BID
     Route: 048
     Dates: start: 20120110

REACTIONS (2)
  - HEADACHE [None]
  - MYALGIA [None]
